FAERS Safety Report 24167893 (Version 1)
Quarter: 2024Q3

REPORT INFORMATION
  Report Type: Spontaneous
  Country: US (occurrence: None)
  Receive Date: 20240802
  Receipt Date: 20240802
  Transmission Date: 20241017
  Serious: Yes (Disabling)
  Sender: Public
  Company Number: None

PATIENT
  Age: 50 Year
  Sex: Female
  Weight: 65.25 kg

DRUGS (3)
  1. KENALOG [Suspect]
     Active Substance: TRIAMCINOLONE ACETONIDE
     Indication: Sacroiliitis
     Dosage: OTHER ROUTE : INJECTED INTO SI JOINTS;?
     Route: 050
     Dates: start: 20240722
  2. PROBIOTICS NOS [Concomitant]
     Active Substance: PROBIOTICS NOS
  3. MAGNESIUM CITRATE [Concomitant]
     Active Substance: MAGNESIUM CITRATE

REACTIONS (14)
  - Headache [None]
  - Depression [None]
  - Decreased interest [None]
  - Mood altered [None]
  - Apathy [None]
  - Anger [None]
  - Agitation [None]
  - Irritability [None]
  - Lack of empathy [None]
  - Menstruation delayed [None]
  - Dyspnoea [None]
  - Palpitations [None]
  - Heart rate increased [None]
  - Increased appetite [None]

NARRATIVE: CASE EVENT DATE: 20240723
